FAERS Safety Report 6430995-6 (Version None)
Quarter: 2009Q4

REPORT INFORMATION
  Report Type: 
  Country: None (occurrence: None)
  Receive Date: 20091106
  Receipt Date: 20091029
  Transmission Date: 20100525
  Serious: Yes (Life-Threatening, Hospitalization)
  Sender: FDA-Public Use
  Company Number: NL-JNJFOC-20091005895

PATIENT
  Sex: Female
  Weight: 73 kg

DRUGS (11)
  1. INFLIXIMAB, RECOMBINANT [Suspect]
     Route: 042
  2. INFLIXIMAB, RECOMBINANT [Suspect]
     Route: 042
  3. INFLIXIMAB, RECOMBINANT [Suspect]
     Route: 042
  4. INFLIXIMAB, RECOMBINANT [Suspect]
     Indication: RHEUMATOID ARTHRITIS
     Route: 042
  5. METHOTREXATE [Concomitant]
     Dosage: 5 CAPSULES
     Route: 048
  6. METHOTREXATE [Concomitant]
     Dosage: 4 CAPSULES
     Route: 048
  7. METHOTREXATE [Concomitant]
     Dosage: 4 CAPSULES
     Route: 048
  8. METHOTREXATE [Concomitant]
     Dosage: 3 CAPSULES
     Route: 048
  9. METHOTREXATE [Concomitant]
     Dosage: 3 CAPSULES
     Route: 048
  10. METHOTREXATE [Concomitant]
     Dosage: 2 CAPSULES
     Route: 048
  11. METHOTREXATE [Concomitant]
     Indication: RHEUMATOID ARTHRITIS
     Dosage: 2 CAPSULES
     Route: 048

REACTIONS (1)
  - PNEUMOCYSTIS JIROVECI PNEUMONIA [None]
